FAERS Safety Report 8181225-9 (Version None)
Quarter: 2012Q1

REPORT INFORMATION
  Report Type: 
  Country: None (occurrence: None)
  Receive Date: 20120126
  Receipt Date: 20111128
  Transmission Date: 20120608
  Serious: Yes (Other)
  Sender: FDA-Public Use
  Company Number: PHEH2011US008762

PATIENT
  Age: 12 Year
  Sex: Female
  Weight: 36.5 kg

DRUGS (7)
  1. AFINITOR [Suspect]
     Indication: ASTROCYTOMA
     Dosage: 5 MG, DAILY, ORAL
     Route: 048
     Dates: start: 20110829
  2. FELBATOL [Concomitant]
  3. RISPERIDONE [Concomitant]
  4. TRILEPTAL [Concomitant]
  5. ANTIPSYCHOTICS (NO INGREDIENTS/SUBSTANCES) [Concomitant]
  6. SEROQUEL [Concomitant]
  7. CLONIDINE [Concomitant]

REACTIONS (6)
  - LETHARGY [None]
  - ABNORMAL BEHAVIOUR [None]
  - AURA [None]
  - CONVULSION [None]
  - SENSORY DISTURBANCE [None]
  - SOMNOLENCE [None]
